FAERS Safety Report 5633434-8 (Version None)
Quarter: 2008Q1

REPORT INFORMATION
  Report Type: 
  Country: None (occurrence: None)
  Receive Date: 20080221
  Receipt Date: 20080219
  Transmission Date: 20080703
  Serious: Yes (Other)
  Sender: FDA-Public Use
  Company Number: US-PFIZER INC-2006090444

PATIENT
  Sex: Male
  Weight: 132.5 kg

DRUGS (3)
  1. RELPAX [Suspect]
     Indication: MIGRAINE
     Route: 048
  2. VISTARIL PARENTERAL SOLUTION [Suspect]
     Indication: VOMITING
     Dates: start: 20060713, end: 20060713
  3. ZYRTEC [Concomitant]

REACTIONS (3)
  - MUSCULOSKELETAL STIFFNESS [None]
  - NAUSEA [None]
  - NECK PAIN [None]
